FAERS Safety Report 9401471 (Version 7)
Quarter: 2013Q3

REPORT INFORMATION
  Report Type: Report from Study
  Country: BR (occurrence: BR)
  Receive Date: 20130716
  Receipt Date: 20130928
  Transmission Date: 20140515
  Serious: Yes (Other)
  Sender: FDA-Public Use
  Company Number: BR-ROCHE-1248318

PATIENT
  Age: 65 Year
  Sex: Female
  Weight: 64.6 kg

DRUGS (8)
  1. RHUPH20/TRASTUZUMAB [Suspect]
     Indication: BREAST CANCER
     Dosage: THE LAST DOSE OF RHUPH20/TRASTUZUMAB ON 28/JUN/2013
     Route: 058
     Dates: start: 20130607
  2. PLASIL [Concomitant]
     Route: 065
     Dates: start: 20130610, end: 20130614
  3. ENALAPRIL [Concomitant]
     Route: 065
     Dates: start: 2008
  4. HYDROCHLOROTHIAZIDE [Concomitant]
     Route: 065
     Dates: start: 2008
  5. ALENDRONATE SODIUM [Concomitant]
     Route: 065
     Dates: start: 2011
  6. CALCIUM CARBONATE [Concomitant]
     Route: 065
     Dates: start: 2011
  7. ONDANSETRON [Concomitant]
     Route: 065
     Dates: start: 20130707
  8. DEXAMETHASONE [Concomitant]
     Route: 065
     Dates: start: 20130607

REACTIONS (1)
  - Injection site erythema [Recovered/Resolved]
